FAERS Safety Report 20546620 (Version 2)
Quarter: 2022Q1

REPORT INFORMATION
  Report Type: Spontaneous
  Country: FR (occurrence: FR)
  Receive Date: 20220303
  Receipt Date: 20220308
  Transmission Date: 20220423
  Serious: Yes (Other)
  Sender: FDA-Public Use
  Company Number: None

PATIENT
  Age: 30 Year
  Sex: Male

DRUGS (4)
  1. PREGABALIN [Suspect]
     Active Substance: PREGABALIN
     Dosage: 900 MG, DAILY IN 3 INTAKES
     Route: 048
     Dates: start: 2015, end: 2020
  2. RIVOTRIL [Suspect]
     Active Substance: CLONAZEPAM
     Dosage: UNK, DAILY, WITHOUT ANY OTHER INFORMATION
     Route: 065
  3. DIAZEPAM [Suspect]
     Active Substance: DIAZEPAM
     Dosage: UNK, DAILY WITHOUT ANY OTHER INFORMATION
     Route: 065
  4. CANNABIS SATIVA SUBSP. INDICA TOP [Suspect]
     Active Substance: CANNABIS SATIVA SUBSP. INDICA TOP
     Dosage: UNK, DAILY WITHOUT ANY OTHER INFORMATION
     Route: 065

REACTIONS (3)
  - Overdose [Unknown]
  - Drug abuse [Unknown]
  - Drug dependence [Unknown]
